FAERS Safety Report 7246441-9 (Version None)
Quarter: 2011Q1

REPORT INFORMATION
  Report Type: 
  Country: None (occurrence: None)
  Receive Date: 20110126
  Receipt Date: 20110118
  Transmission Date: 20110831
  Serious: Yes (Hospitalization)
  Sender: FDA-Public Use
  Company Number: US-RB-021013-11

PATIENT
  Age: 50 Year
  Sex: Female

DRUGS (4)
  1. SUBOXONE [Suspect]
     Indication: PRODUCT USED FOR UNKNOWN INDICATION
     Route: 065
     Dates: start: 20110115, end: 20110101
  2. SUBOXONE [Suspect]
     Route: 065
     Dates: start: 20110117
  3. VICODIN [Suspect]
     Indication: PRODUCT USED FOR UNKNOWN INDICATION
     Dosage: HAD BEEN TAKING 10 VICODIN DAILY. NO OTHER DOSING DETAILS ARE KNOWN
     Route: 065
     Dates: end: 20110113
  4. MS CONTIN [Suspect]
     Indication: PRODUCT USED FOR UNKNOWN INDICATION
     Dosage: HAD BEEN TAKING 4  PER DAY. NO OTHER DOSING DETAILS ARE KNOWN
     Route: 065
     Dates: end: 20110113

REACTIONS (2)
  - DYSKINESIA [None]
  - AGGRESSION [None]
